FAERS Safety Report 4510638-9 (Version None)
Quarter: 2004Q4

REPORT INFORMATION
  Report Type: 
  Country: None (occurrence: None)
  Receive Date: 20041122
  Receipt Date: 20041111
  Transmission Date: 20050328
  Serious: Yes (Hospitalization)
  Sender: FDA-Public Use
  Company Number: TCI2004A02914

PATIENT
  Age: 71 Year
  Sex: Female

DRUGS (11)
  1. ACTOS [Suspect]
     Indication: DIABETES MELLITUS NON-INSULIN-DEPENDENT
     Dosage: 7.5 MG (7.5MG,1
     Route: 048
     Dates: end: 20040606
  2. ACTOS [Suspect]
     Indication: DIABETES MELLITUS NON-INSULIN-DEPENDENT
     Dosage: 7.5 MG (7.5MG,1
     Route: 048
     Dates: start: 20040607, end: 20040722
  3. TICLOPIDINE HCL [Suspect]
     Indication: ANGINA PECTORIS
     Dosage: 200 MG (200 MG, 1D)
     Route: 048
     Dates: start: 20040612, end: 20040622
  4. LIPITOR [Suspect]
     Indication: HYPERLIPIDAEMIA
     Dosage: SEE IMAGE
     Route: 048
     Dates: end: 20040601
  5. LIPITOR [Suspect]
     Indication: HYPERLIPIDAEMIA
     Dosage: SEE IMAGE
     Route: 048
     Dates: start: 20040607, end: 20040722
  6. ACETYLSALICYLIC ACID [Concomitant]
  7. ISOSORBIDE MONONITRATE [Concomitant]
  8. AZULENE/GLUTAMINE (AZULENE SULFONATE SODIUM/L-GLUTAMINE) [Concomitant]
  9. NORVASC [Concomitant]
  10. PROTOPORPHYRIN DISODIUM [Concomitant]
  11. SENNA LEAF [Concomitant]

REACTIONS (6)
  - ALANINE AMINOTRANSFERASE INCREASED [None]
  - ASPARTATE AMINOTRANSFERASE INCREASED [None]
  - BLOOD BILIRUBIN INCREASED [None]
  - CORONARY ARTERY STENOSIS [None]
  - HEPATOTOXICITY [None]
  - PRURITUS [None]
